FAERS Safety Report 18718158 (Version 1)
Quarter: 2021Q1

REPORT INFORMATION
  Report Type: Spontaneous
  Country: NL (occurrence: NL)
  Receive Date: 20210108
  Receipt Date: 20210108
  Transmission Date: 20210419
  Serious: Yes (Death, Hospitalization)
  Sender: FDA-Public Use
  Company Number: NL-009507513-2101NLD001925

PATIENT
  Age: 78 Year
  Sex: Male
  Weight: 98 kg

DRUGS (7)
  1. OMEPRAZOLE. [Concomitant]
     Active Substance: OMEPRAZOLE
     Dosage: GASTRIC?RESISTANT CAPSULE, 20 MG (MILLIGRAM)
  2. PARACETAMOL TABLETS BP [Concomitant]
     Active Substance: ACETAMINOPHEN
     Dosage: TABLET, 500 MILLIGRAM
  3. NAPROXEN. [Concomitant]
     Active Substance: NAPROXEN
     Dosage: GASTRIC?RESISTANT CAPSULE, 500 MG (MILLIGRAM)
  4. KEYTRUDA [Suspect]
     Active Substance: PEMBROLIZUMAB
     Indication: NON-SMALL CELL LUNG CANCER
     Dosage: 200 MG EVERY THREE WEEKS
     Dates: start: 20191204, end: 20191224
  5. DUROGESIC [Concomitant]
     Active Substance: FENTANYL
     Dosage: PATCH, 50 ?G (MICROGRAM) PER UUR
  6. ALFUZOSIN HYDROCHLORIDE. [Concomitant]
     Active Substance: ALFUZOSIN HYDROCHLORIDE
     Dosage: MODIFIED RELEASE TABLET  10 MG (MILLIGRAM)
  7. OXYCODONE [Concomitant]
     Active Substance: OXYCODONE
     Dosage: CAPSULE, 10 MILLIGRAM

REACTIONS (1)
  - Myositis [Fatal]

NARRATIVE: CASE EVENT DATE: 20191224
